FAERS Safety Report 7548251-1 (Version None)
Quarter: 2011Q2

REPORT INFORMATION
  Report Type: 
  Country: None (occurrence: None)
  Receive Date: 20110524
  Receipt Date: 20110316
  Transmission Date: 20111010
  Serious: No
  Sender: FDA-Public Use
  Company Number: 026338

PATIENT
  Sex: Male
  Weight: 127.0072 kg

DRUGS (9)
  1. CIMZIA [Suspect]
     Indication: CROHN'S DISEASE
     Dosage: SEE IMAGE SUBCUTANEOUS
     Route: 058
     Dates: start: 20091007
  2. CIMZIA [Suspect]
     Indication: CROHN'S DISEASE
     Dosage: SEE IMAGE SUBCUTANEOUS
     Route: 058
     Dates: start: 20090729, end: 20090923
  3. CIMZIA [Suspect]
     Indication: CROHN'S DISEASE
     Dosage: SEE IMAGE SUBCUTANEOUS
     Route: 058
     Dates: start: 20090923
  4. CIMZIA [Suspect]
     Indication: CROHN'S DISEASE
     Dosage: SEE IMAGE SUBCUTANEOUS
     Route: 058
     Dates: start: 20090701
  5. DIOVAN HCT [Concomitant]
  6. CIMZIA [Suspect]
  7. CALCIUM WITH VITAMIN D [Concomitant]
  8. CIMZIA [Suspect]
  9. SIMVASTATIN [Concomitant]

REACTIONS (10)
  - FREQUENT BOWEL MOVEMENTS [None]
  - ACNE [None]
  - COUGH [None]
  - FAECES DISCOLOURED [None]
  - BODY TEMPERATURE INCREASED [None]
  - DIZZINESS [None]
  - NECK MASS [None]
  - ARTHRALGIA [None]
  - NASOPHARYNGITIS [None]
  - BACK PAIN [None]
